FAERS Safety Report 12379970 (Version 4)
Quarter: 2016Q2

REPORT INFORMATION
  Report Type: Spontaneous
  Country: US (occurrence: US)
  Receive Date: 20160518
  Receipt Date: 20160610
  Transmission Date: 20160815
  Serious: Yes (Life-Threatening, Hospitalization, Disabling, Other)
  Sender: FDA-Public Use
  Company Number: US-009507513-1605USA004910

PATIENT
  Age: 74 Year
  Sex: Male

DRUGS (4)
  1. TICE BCG [Suspect]
     Active Substance: BACILLUS CALMETTE-GUERIN SUBSTRAIN TICE LIVE ANTIGEN
     Indication: BLADDER CANCER
     Dosage: UNK
  2. ATENOLOL. [Concomitant]
     Active Substance: ATENOLOL
     Dosage: UNK
  3. DILANTIN [Concomitant]
     Active Substance: PHENYTOIN
     Dosage: UNK
  4. TICE BCG [Suspect]
     Active Substance: BACILLUS CALMETTE-GUERIN SUBSTRAIN TICE LIVE ANTIGEN
     Dosage: UNK, 2ND ROUND
     Dates: start: 20160425

REACTIONS (11)
  - Pain [Unknown]
  - Life support [Unknown]
  - Pancreatic insufficiency [Not Recovered/Not Resolved]
  - Delirium [Not Recovered/Not Resolved]
  - Tuberculosis [Not Recovered/Not Resolved]
  - Hepatic enzyme increased [Unknown]
  - Diarrhoea [Unknown]
  - Hepatic failure [Not Recovered/Not Resolved]
  - Dementia [Unknown]
  - Urinary tract infection [Unknown]
  - Pancreatic enzymes increased [Unknown]

NARRATIVE: CASE EVENT DATE: 2016
